FAERS Safety Report 5963595-2 (Version None)
Quarter: 2008Q4

REPORT INFORMATION
  Report Type: 
  Country: None (occurrence: None)
  Receive Date: 20081124
  Receipt Date: 20081111
  Transmission Date: 20090506
  Serious: Yes (Other)
  Sender: FDA-Public Use
  Company Number: PE-ROCHE-596671

PATIENT
  Sex: Female
  Weight: 50 kg

DRUGS (1)
  1. BONIVA [Suspect]
     Indication: OSTEOPOROSIS
     Dosage: STRENGTH + FORMULATION : 3MG/3ML
     Route: 042
     Dates: start: 20081030

REACTIONS (4)
  - DYSPHAGIA [None]
  - PRURITUS [None]
  - RASH [None]
  - TREMOR [None]
